FAERS Safety Report 5541526-7 (Version None)
Quarter: 2007Q4

REPORT INFORMATION
  Report Type: 
  Country: None (occurrence: None)
  Receive Date: 20071210
  Receipt Date: 20071204
  Transmission Date: 20080405
  Serious: Yes (Death, Hospitalization)
  Sender: FDA-Public Use
  Company Number: PHBS2007IT20456

PATIENT
  Age: 42 Year
  Sex: Female

DRUGS (4)
  1. BASILIXIMAB [Suspect]
     Indication: RENAL TRANSPLANT
     Route: 065
  2. TACROLIMUS [Suspect]
     Indication: RENAL TRANSPLANT
  3. MYCOPHENOLATE MOFETIL [Suspect]
     Indication: RENAL TRANSPLANT
  4. PREDNISONE [Suspect]
     Indication: RENAL TRANSPLANT

REACTIONS (27)
  - ABDOMINAL PAIN [None]
  - CLOSTRIDIUM DIFFICILE COLITIS [None]
  - COLECTOMY [None]
  - COLITIS ISCHAEMIC [None]
  - COMPLICATIONS OF TRANSPLANT SURGERY [None]
  - COMPLICATIONS OF TRANSPLANTED KIDNEY [None]
  - CYTOMEGALOVIRUS COLITIS [None]
  - DIARRHOEA HAEMORRHAGIC [None]
  - GASTROINTESTINAL INFLAMMATION [None]
  - GASTROINTESTINAL OBSTRUCTION [None]
  - ILEAL OPERATION [None]
  - INTESTINAL DILATATION [None]
  - INTESTINAL MUCOSAL HYPERTROPHY [None]
  - ISCHAEMIA [None]
  - KIDNEY ANASTOMOSIS [None]
  - KIDNEY TRANSPLANT REJECTION [None]
  - LAPAROTOMY [None]
  - LARGE INTESTINE PERFORATION [None]
  - MUCOSAL HAEMORRHAGE [None]
  - MULTI-ORGAN FAILURE [None]
  - OLIGURIA [None]
  - PURULENCE [None]
  - PYREXIA [None]
  - SURGERY [None]
  - URETERAL DISORDER [None]
  - URINARY ANASTOMOTIC LEAK [None]
  - VASCULITIS GASTROINTESTINAL [None]
